FAERS Safety Report 11937787 (Version 3)
Quarter: 2016Q1

REPORT INFORMATION
  Report Type: Spontaneous
  Country: US (occurrence: US)
  Receive Date: 20160122
  Receipt Date: 20160215
  Transmission Date: 20160526
  Serious: Yes (Death, Hospitalization, Other)
  Sender: FDA-Public Use
  Company Number: US-009507513-1601USA006800

PATIENT
  Sex: Male

DRUGS (9)
  1. HYDROCODONE [Suspect]
     Active Substance: HYDROCODONE
  2. SYNTHROID [Suspect]
     Active Substance: LEVOTHYROXINE SODIUM
  3. PREDNISONE. [Suspect]
     Active Substance: PREDNISONE
     Route: 048
  4. TESSALON [Suspect]
     Active Substance: BENZONATATE
  5. PROSCAR [Suspect]
     Active Substance: FINASTERIDE
     Route: 048
  6. IRON (UNSPECIFIED) [Suspect]
     Active Substance: IRON
  7. ZOFRAN [Suspect]
     Active Substance: ONDANSETRON HYDROCHLORIDE
  8. KEYTRUDA [Suspect]
     Active Substance: PEMBROLIZUMAB
     Indication: LUNG NEOPLASM MALIGNANT
     Dosage: 115 MG, ONCE
     Route: 042
     Dates: start: 20151230, end: 20151230
  9. MARINOL [Suspect]
     Active Substance: DRONABINOL

REACTIONS (1)
  - Lung neoplasm malignant [Fatal]
